FAERS Safety Report 7535221-2 (Version None)
Quarter: 2011Q2

REPORT INFORMATION
  Report Type: 
  Country: None (occurrence: None)
  Receive Date: 20110609
  Receipt Date: 20071121
  Transmission Date: 20111010
  Serious: Yes (Death, Hospitalization, Other)
  Sender: FDA-Public Use
  Company Number: PHBS2003NZ09807

PATIENT
  Sex: Female

DRUGS (2)
  1. CLOZAPINE [Suspect]
     Dosage: 300 MG, QD
     Route: 048
  2. CLOZAPINE [Suspect]
     Indication: SCHIZOPHRENIA
     Dosage: 350 MG, QD
     Route: 048
     Dates: start: 20010928

REACTIONS (18)
  - HODGKIN'S DISEASE [None]
  - BLOOD GLUCOSE INCREASED [None]
  - LYMPHOPENIA [None]
  - AGRANULOCYTOSIS [None]
  - RED CELL DISTRIBUTION WIDTH INCREASED [None]
  - NEUTROPHIL HYPERSEGMENTED MORPHOLOGY PRESENT [None]
  - WHITE BLOOD CELL COUNT DECREASED [None]
  - BLOOD SODIUM DECREASED [None]
  - HAEMOGLOBIN DECREASED [None]
  - BLOOD POTASSIUM DECREASED [None]
  - BLOOD CALCIUM DECREASED [None]
  - NEUTROPENIA [None]
  - BLOOD URIC ACID DECREASED [None]
  - HAEMATOCRIT DECREASED [None]
  - PLATELET COUNT DECREASED [None]
  - BLOOD FIBRINOGEN INCREASED [None]
  - DEATH [None]
  - RED BLOOD CELL COUNT DECREASED [None]
